FAERS Safety Report 20162135 (Version 1)
Quarter: 2021Q4

REPORT INFORMATION
  Report Type: Spontaneous
  Country: US (occurrence: US)
  Receive Date: 20211208
  Receipt Date: 20211208
  Transmission Date: 20220303
  Serious: No
  Sender: FDA-Public Use
  Company Number: US-BRISTOL-MYERS SQUIBB COMPANY-BMS-2021-131853

PATIENT
  Age: 13 Year
  Sex: Female

DRUGS (1)
  1. ORENCIA [Suspect]
     Active Substance: ABATACEPT
     Indication: Ankylosing spondylitis
     Dosage: 125 MILLIGRAM, QWK
     Route: 058

REACTIONS (4)
  - Intentional product use issue [Unknown]
  - Product distribution issue [Unknown]
  - Pain [Unknown]
  - Mobility decreased [Unknown]
